FAERS Safety Report 4755112-X (Version None)
Quarter: 2005Q3

REPORT INFORMATION
  Report Type: 
  Country: None (occurrence: None)
  Receive Date: 20050825
  Receipt Date: 20050810
  Transmission Date: 20060218
  Serious: Yes (Death, Hospitalization)
  Sender: FDA-Public Use
  Company Number: 2005-01591

PATIENT
  Age: 70 Year
  Sex: Female
  Weight: 59 kg

DRUGS (29)
  1. VELCADE [Suspect]
     Indication: MULTIPLE MYELOMA
     Dosage: 1.30 MG/M2, 2/WEEK, INTRAVENOUS
     Route: 042
     Dates: start: 20050715, end: 20050718
  2. VELCADE [Suspect]
     Indication: MULTIPLE MYELOMA
     Dosage: 1.30 MG/M2, 2/WEEK, INTRAVENOUS
     Route: 042
     Dates: start: 20050603
  3. DOXIL [Suspect]
     Indication: MULTIPLE MYELOMA
     Dosage: 30.00 MG/M2, Q3WEEKS, INTRAVENOUS
     Route: 042
     Dates: end: 20050627
  4. DOXIL [Suspect]
     Indication: MULTIPLE MYELOMA
     Dosage: 30.00 MG/M2, Q3WEEKS, INTRAVENOUS
     Route: 042
     Dates: start: 20050606
  5. ENOXAPARIN SODIUM [Concomitant]
  6. OXYGEN (OXYGEN) [Concomitant]
  7. ALBUTEROL [Concomitant]
  8. ANTICOAGULANT CITRATE DEXTROSE (ANTICOAGULANT CITRATE DEXTROSE) [Concomitant]
  9. ANALGESICS [Concomitant]
  10. ANTIBIOTICS [Concomitant]
  11. ZOLEDRONIC ACID (ZOLEDRONIC ACID) [Concomitant]
  12. METOCLOPRAMIDE [Concomitant]
  13. TROPISETRONE (TROPISETRON) [Concomitant]
  14. PARACETAMOL (PARACETAMOL) [Concomitant]
  15. GENTAMICIN [Concomitant]
  16. SULFAMETHOXAZOLE + TRIMETHOPRIM [Concomitant]
  17. OXYCODONE HCL [Concomitant]
  18. ALUMINIUM W/MAGNESIUM HYDROXIDE/SIMETICONE/ (MAGNESIUM HYDROXIDE, SIME [Concomitant]
  19. CALCIUM CHLORIDE (CALCIUM CHLORIDE DIHYDRATE [Concomitant]
  20. PHOSPHATE-SANDOZ (SODIUM BICARBONATE, SODIUM PHOSPHATE MONOBASIC (ANHY [Concomitant]
  21. POTASSIUM CHLORIDE [Concomitant]
  22. RABEPRAZOLE SODIUM [Concomitant]
  23. CEPHALEXIN [Concomitant]
  24. CEFTRIAXONE [Concomitant]
  25. AMOXICILLIN [Concomitant]
  26. SODIUM CITRATE [Concomitant]
  27. CODEINE SUL TAB [Concomitant]
  28. TEMAZEPAM [Concomitant]
  29. WARFARIN SODIUM [Concomitant]

REACTIONS (15)
  - BLOOD POTASSIUM INCREASED [None]
  - CONFUSIONAL STATE [None]
  - DIARRHOEA [None]
  - DILATATION ATRIAL [None]
  - DILATATION VENTRICULAR [None]
  - ELECTROCARDIOGRAM T WAVE INVERSION [None]
  - MYOCARDIAL ISCHAEMIA [None]
  - PLEURAL EFFUSION [None]
  - PULMONARY HYPERTENSION [None]
  - PYREXIA [None]
  - RESPIRATORY FAILURE [None]
  - RHABDOMYOLYSIS [None]
  - TRICUSPID VALVE INCOMPETENCE [None]
  - URINARY TRACT INFECTION [None]
  - VENTRICULAR DYSFUNCTION [None]
